FAERS Safety Report 12569900 (Version 1)
Quarter: 2016Q3

REPORT INFORMATION
  Report Type: Spontaneous
  Country: US (occurrence: None)
  Receive Date: 20160718
  Receipt Date: 20160718
  Transmission Date: 20161109
  Serious: Yes (Life-Threatening, Disabling)
  Sender: FDA-Public Use
  Company Number: None

PATIENT
  Age: 37 Year
  Sex: Female
  Weight: 72.58 kg

DRUGS (6)
  1. SYNTHROID [Concomitant]
     Active Substance: LEVOTHYROXINE SODIUM
  2. MIRENA [Concomitant]
     Active Substance: LEVONORGESTREL
  3. MAGNESIUM [Concomitant]
     Active Substance: MAGNESIUM
  4. BIOTIN [Concomitant]
     Active Substance: BIOTIN
  5. MINOCYCLINE, 100 MG [Suspect]
     Active Substance: MINOCYCLINE HYDROCHLORIDE
     Indication: ACNE
     Route: 048
  6. LIVER CLEANSE [Concomitant]

REACTIONS (14)
  - Ocular icterus [None]
  - Alopecia [None]
  - Musculoskeletal stiffness [None]
  - Dry skin [None]
  - Arthralgia [None]
  - Eye irritation [None]
  - Chromaturia [None]
  - Skin odour abnormal [None]
  - Skin discolouration [None]
  - Solar lentigo [None]
  - Fatigue [None]
  - Myalgia [None]
  - Lip exfoliation [None]
  - Joint swelling [None]

NARRATIVE: CASE EVENT DATE: 20140101
